FAERS Safety Report 23924447 (Version 2)
Quarter: 2024Q2

REPORT INFORMATION
  Report Type: Spontaneous
  Country: US (occurrence: US)
  Receive Date: 20240531
  Receipt Date: 20240603
  Transmission Date: 20240716
  Serious: Yes (Other)
  Sender: FDA-Public Use
  Company Number: US-PFIZER INC-PV202400071057

PATIENT
  Age: 75 Year
  Sex: Female

DRUGS (1)
  1. IBRANCE [Suspect]
     Active Substance: PALBOCICLIB
     Dosage: TAKE 125 MG BY MOUTH ONCE DAILY. TAKE FOR 21 DAYS FOLLOWED BY 7 DAYS OFF OF A 28 DAY CYCLE.
     Route: 048

REACTIONS (2)
  - Second primary malignancy [Unknown]
  - Bone cancer [Unknown]
